FAERS Safety Report 6961032-2 (Version None)
Quarter: 2010Q3

REPORT INFORMATION
  Report Type: 
  Country: None (occurrence: None)
  Receive Date: 20100901
  Receipt Date: 20100827
  Transmission Date: 20110219
  Serious: Yes (Hospitalization)
  Sender: FDA-Public Use
  Company Number: US-MERCK-1007USA01269

PATIENT
  Age: 72 Year
  Sex: Female

DRUGS (4)
  1. COZAAR [Suspect]
     Indication: HYPERTENSION
     Route: 048
     Dates: start: 20100501
  2. COZAAR [Suspect]
     Route: 048
     Dates: end: 20100708
  3. NEXIUM [Concomitant]
     Route: 065
  4. GLUCOPHAGE [Concomitant]
     Route: 065

REACTIONS (2)
  - MUSCULAR WEAKNESS [None]
  - SALIVARY GLAND ENLARGEMENT [None]
